FAERS Safety Report 8766293 (Version 1)
Quarter: 2012Q4

REPORT INFORMATION
  Report Type: 
  Country: DE (occurrence: DE)
  Receive Date: 20120904
  Receipt Date: 20120904
  Transmission Date: 20130627
  Serious: Yes (Other)
  Sender: FDA-Public Use
  Company Number: DE-AMGEN-DEUSP2012055158

PATIENT
  Sex: Female

DRUGS (3)
  1. NEULASTA [Suspect]
     Indication: CHEMOTHERAPY
  2. GEMCITABINE [Concomitant]
     Indication: TRANSITIONAL CELL CARCINOMA
  3. DOCETAXEL [Concomitant]
     Indication: TRANSITIONAL CELL CARCINOMA

REACTIONS (2)
  - Neutrophil count decreased [Unknown]
  - Drug effect decreased [Unknown]
